FAERS Safety Report 16714292 (Version 1)
Quarter: 2019Q3

REPORT INFORMATION
  Report Type: Spontaneous
  Country: US (occurrence: US)
  Receive Date: 20190819
  Receipt Date: 20190819
  Transmission Date: 20191004
  Serious: No
  Sender: FDA-Public Use
  Company Number: US-009507513-1908USA002643

PATIENT
  Sex: Male

DRUGS (4)
  1. TEMODAR [Suspect]
     Active Substance: TEMOZOLOMIDE
     Indication: BRAIN NEOPLASM
     Dosage: UNK
     Route: 048
     Dates: end: 20190729
  2. KEPPRA [Concomitant]
     Active Substance: LEVETIRACETAM
     Dosage: UNK
  3. LOSARTAN. [Concomitant]
     Active Substance: LOSARTAN
     Dosage: UNK
  4. ZANTAC [Concomitant]
     Active Substance: RANITIDINE HYDROCHLORIDE
     Dosage: UNK

REACTIONS (2)
  - Dysuria [Not Recovered/Not Resolved]
  - Micturition urgency [Not Recovered/Not Resolved]

NARRATIVE: CASE EVENT DATE: 20190805
